FAERS Safety Report 24235325 (Version 2)
Quarter: 2024Q4

REPORT INFORMATION
  Report Type: Report from Study
  Country: BR (occurrence: BR)
  Receive Date: 20240821
  Receipt Date: 20241009
  Transmission Date: 20250114
  Serious: Yes (Other)
  Sender: ALEXION PHARMACEUTICALS
  Company Number: 2024A190461

PATIENT
  Age: 74 Year

DRUGS (15)
  1. CRESTOR [Suspect]
     Active Substance: ROSUVASTATIN CALCIUM
     Indication: Blood cholesterol
     Dosage: ONCE
  2. CRESTOR [Suspect]
     Active Substance: ROSUVASTATIN CALCIUM
     Dosage: ONCE
  3. CRESTOR [Suspect]
     Active Substance: ROSUVASTATIN CALCIUM
     Dosage: ONCE
  4. CRESTOR [Suspect]
     Active Substance: ROSUVASTATIN CALCIUM
     Dosage: ONCE
  5. ATACAND HCT [Suspect]
     Active Substance: CANDESARTAN CILEXETIL\HYDROCHLOROTHIAZIDE
     Indication: Hypertension
     Dosage: ONCE; 8/12.5MG(CANDESARTAN CILEXETIL +HYDROCHLOROTHIAZIDE), FREQUENCY: QAM
  6. ATACAND HCT [Suspect]
     Active Substance: CANDESARTAN CILEXETIL\HYDROCHLOROTHIAZIDE
     Dosage: ONCE; 8/12.5MG(CANDESARTAN CILEXETIL +HYDROCHLOROTHIAZIDE), FREQUENCY: QAM
  7. ATACAND HCT [Suspect]
     Active Substance: CANDESARTAN CILEXETIL\HYDROCHLOROTHIAZIDE
     Dosage: ONCE; 8/12.5MG(CANDESARTAN CILEXETIL +HYDROCHLOROTHIAZIDE), FREQUENCY: QAM
  8. ATACAND HCT [Suspect]
     Active Substance: CANDESARTAN CILEXETIL\HYDROCHLOROTHIAZIDE
     Dosage: ONCE; 8/12.5MG(CANDESARTAN CILEXETIL +HYDROCHLOROTHIAZIDE), FREQUENCY: QAM
  9. UNSPECIFIED INGREDIENT [Suspect]
     Active Substance: UNSPECIFIED INGREDIENT
  10. NEXIUM [Suspect]
     Active Substance: ESOMEPRAZOLE MAGNESIUM
  11. NEXIUM [Suspect]
     Active Substance: ESOMEPRAZOLE MAGNESIUM
  12. AZD-1222 [Suspect]
     Active Substance: AZD-1222
  13. AZD-1222 [Suspect]
     Active Substance: AZD-1222
  14. AZD-1222 [Suspect]
     Active Substance: AZD-1222
  15. AZD-1222 [Suspect]
     Active Substance: AZD-1222

REACTIONS (7)
  - Basal cell carcinoma [Unknown]
  - Hypertension [Unknown]
  - Intervertebral disc protrusion [Not Recovered/Not Resolved]
  - Lactose intolerance [Unknown]
  - Gastritis [Unknown]
  - Dizziness [Unknown]
  - Off label use [Not Recovered/Not Resolved]
